FAERS Safety Report 23352042 (Version 1)
Quarter: 2023Q4

REPORT INFORMATION
  Report Type: Spontaneous
  Country: US (occurrence: US)
  Receive Date: 20231229
  Receipt Date: 20231229
  Transmission Date: 20240110
  Serious: Yes (Death, Hospitalization, Other)
  Sender: FDA-Public Use
  Company Number: US-GLAXOSMITHKLINE-US2023GSK179986

PATIENT

DRUGS (1)
  1. BUPROPION [Suspect]
     Active Substance: BUPROPION
     Indication: Product used for unknown indication
     Dosage: UNK
     Route: 048

REACTIONS (14)
  - Death [Fatal]
  - Accidental exposure to product [Fatal]
  - Overdose [Fatal]
  - Musculoskeletal stiffness [Fatal]
  - Tremor [Fatal]
  - Seizure like phenomena [Fatal]
  - Apnoea [Fatal]
  - Bradycardia [Fatal]
  - Ventricular tachycardia [Fatal]
  - Cardiac arrest [Fatal]
  - Hypothermia [Fatal]
  - Brain oedema [Fatal]
  - Brain herniation [Fatal]
  - Clonus [Fatal]
